FAERS Safety Report 10917660 (Version 1)
Quarter: 2015Q1

REPORT INFORMATION
  Report Type: Spontaneous
  Country: US (occurrence: None)
  Receive Date: 20150311
  Receipt Date: 20150311
  Transmission Date: 20150721
  Serious: Yes (Other)
  Sender: FDA-Public Use
  Company Number: 001878740A

PATIENT
  Age: 30 Year
  Sex: Female

DRUGS (4)
  1. PROACTIVPLUS SKIN SMOOTHING EXFOLIATOR [Suspect]
     Active Substance: BENZOYL PEROXIDE
     Indication: ACNE
     Dosage: DERMAL BID
     Dates: start: 20141103, end: 20150130
  2. PROACTIV PLUS COMPLEXION PERFECTING HYDRATOR [Suspect]
     Active Substance: SALICYLIC ACID
     Indication: ACNE
     Dosage: BID DERMAL
     Route: 061
     Dates: start: 20141103, end: 20150130
  3. PROACTIV PLUS PORE TARGETING TREATMENT [Suspect]
     Active Substance: BENZOYL PEROXIDE
     Indication: ACNE
     Dosage: BID DERMAL
     Dates: start: 20141103, end: 20150130
  4. PROACTIV SOLUTION REFINING MASK [Suspect]
     Active Substance: SULFUR
     Indication: ACNE
     Dosage: DERMAL ONE TIME
     Dates: start: 20150130

REACTIONS (3)
  - Skin ulcer [None]
  - Chemical injury [None]
  - Pharyngeal oedema [None]

NARRATIVE: CASE EVENT DATE: 20150130
